FAERS Safety Report 13222141 (Version 1)
Quarter: 2017Q1

REPORT INFORMATION
  Report Type: Other
  Country: US (occurrence: US)
  Receive Date: 20170211
  Receipt Date: 20170211
  Transmission Date: 20170428
  Serious: No
  Sender: FDA-Public Use
  Company Number: US-ACORDA-ACO_132480_2017

PATIENT
  Sex: Male

DRUGS (2)
  1. AMPYRA [Suspect]
     Active Substance: DALFAMPRIDINE
     Indication: MULTIPLE SCLEROSIS
     Dosage: 10 MG, Q 12 HRS
     Route: 048
     Dates: start: 201103
  2. AMPYRA [Suspect]
     Active Substance: DALFAMPRIDINE
     Indication: ESSENTIAL HYPERTENSION

REACTIONS (3)
  - Inappropriate schedule of drug administration [Unknown]
  - Constipation [Unknown]
  - Off label use [Unknown]
